FAERS Safety Report 19442179 (Version 1)
Quarter: 2021Q2

REPORT INFORMATION
  Report Type: Spontaneous
  Country: US (occurrence: US)
  Receive Date: 20210618
  Receipt Date: 20210618
  Transmission Date: 20210717
  Serious: Yes (Other)
  Sender: FDA-Public Use
  Company Number: None

PATIENT
  Age: 64 Year
  Sex: Male
  Weight: 93.7 kg

DRUGS (3)
  1. TICAGRELOR. [Concomitant]
     Active Substance: TICAGRELOR
     Dates: start: 20210616
  2. HEPARIN [Suspect]
     Active Substance: HEPARIN SODIUM
     Indication: CORONARY ARTERY DISEASE
     Route: 040
     Dates: start: 20210616, end: 20210616
  3. ASPIRIN. [Concomitant]
     Active Substance: ASPIRIN
     Dates: start: 20210616

REACTIONS (1)
  - Vascular stent thrombosis [None]

NARRATIVE: CASE EVENT DATE: 20210616
